FAERS Safety Report 12603841 (Version 2)
Quarter: 2016Q3

REPORT INFORMATION
  Report Type: Spontaneous
  Country: DE (occurrence: DE)
  Receive Date: 20160728
  Receipt Date: 20160913
  Transmission Date: 20161109
  Serious: Yes (Other)
  Sender: FDA-Public Use
  Company Number: GXKR2016DE003582

PATIENT

DRUGS (1)
  1. AMINEURIN RETARD [Suspect]
     Active Substance: AMITRIPTYLINE HYDROCHLORIDE
     Indication: DEPRESSION
     Dosage: UNKNOWN DOSE
     Route: 048

REACTIONS (5)
  - Pain [Unknown]
  - Skin discolouration [Unknown]
  - Haematoma [Unknown]
  - Hypersensitivity vasculitis [Unknown]
  - Breast inflammation [Unknown]

NARRATIVE: CASE EVENT DATE: 201603
